FAERS Safety Report 25135521 (Version 1)
Quarter: 2025Q1

REPORT INFORMATION
  Report Type: Report from Study
  Country: IT (occurrence: IT)
  Receive Date: 20250328
  Receipt Date: 20250328
  Transmission Date: 20250409
  Serious: Yes (Death, Other)
  Sender: GILEAD
  Company Number: IT-GILEAD-2025-0708558

PATIENT
  Sex: Male

DRUGS (1)
  1. AXICABTAGENE CILOLEUCEL [Suspect]
     Active Substance: AXICABTAGENE CILOLEUCEL
     Indication: Non-Hodgkin^s lymphoma
     Route: 065

REACTIONS (1)
  - Death [Fatal]
